FAERS Safety Report 11623396 (Version 1)
Quarter: 2015Q4

REPORT INFORMATION
  Report Type: Spontaneous
  Country: US (occurrence: US)
  Receive Date: 20151013
  Receipt Date: 20151013
  Transmission Date: 20160304
  Serious: No
  Sender: FDA-Public Use
  Company Number: US-JNJFOC-20150321585

PATIENT
  Age: 40 Year
  Sex: Female

DRUGS (3)
  1. ACETAMINOPHEN. [Suspect]
     Active Substance: ACETAMINOPHEN
     Route: 048
  2. ACETAMINOPHEN. [Suspect]
     Active Substance: ACETAMINOPHEN
     Indication: SUICIDE ATTEMPT
     Route: 048
  3. TYLENOL EXTRA STRENGTH [Suspect]
     Active Substance: ACETAMINOPHEN
     Indication: SUICIDE ATTEMPT
     Route: 048

REACTIONS (2)
  - Drug administration error [Unknown]
  - Overdose [Unknown]
